FAERS Safety Report 9536937 (Version 3)
Quarter: 2013Q4

REPORT INFORMATION
  Report Type: Spontaneous
  Country: JP (occurrence: JP)
  Receive Date: 20130919
  Receipt Date: 20131112
  Transmission Date: 20140711
  Serious: Yes (Life-Threatening, Other)
  Sender: FDA-Public Use
  Company Number: JP-ABBVIE-13P-087-1148935-00

PATIENT
  Age: 40 Year
  Sex: Female
  Weight: 43 kg

DRUGS (6)
  1. CLARITH [Suspect]
     Indication: BRONCHITIS
     Route: 048
     Dates: start: 20121109, end: 20121114
  2. ASTOMIN [Concomitant]
     Indication: BRONCHITIS
     Route: 048
     Dates: start: 20121109, end: 20121114
  3. HUSTAZOL [Concomitant]
     Indication: BRONCHITIS
     Route: 048
     Dates: start: 20121109, end: 20121114
  4. MUCOSAL [Concomitant]
     Indication: BRONCHITIS
     Route: 048
     Dates: start: 20121109, end: 20121114
  5. CALONAL [Concomitant]
     Indication: BRONCHITIS
     Route: 048
     Dates: start: 20121109, end: 20121114
  6. ACETYLSALICYLIC ACID ALUMINIUM [Concomitant]
     Indication: PRODUCT USED FOR UNKNOWN INDICATION
     Route: 048

REACTIONS (2)
  - Ventricular fibrillation [Recovered/Resolved]
  - Long QT syndrome [Unknown]
